FAERS Safety Report 15610552 (Version 1)
Quarter: 2018Q4

REPORT INFORMATION
  Report Type: Spontaneous
  Country: US (occurrence: US)
  Receive Date: 20181113
  Receipt Date: 20181113
  Transmission Date: 20190205
  Serious: No
  Sender: FDA-Public Use
  Company Number: US-ROCHE-2179775

PATIENT
  Sex: Male
  Weight: 70.37 kg

DRUGS (1)
  1. PULMOZYME [Suspect]
     Active Substance: DORNASE ALFA
     Indication: PRODUCT USED FOR UNKNOWN INDICATION
     Dosage: ONGOING:YES
     Route: 050
     Dates: start: 20161220

REACTIONS (2)
  - Product dose omission [Unknown]
  - No adverse event [Unknown]
